FAERS Safety Report 21557432 (Version 1)
Quarter: 2022Q4

REPORT INFORMATION
  Report Type: Spontaneous
  Country: FR (occurrence: FR)
  Receive Date: 20221105
  Receipt Date: 20221105
  Transmission Date: 20230113
  Serious: Yes (Other)
  Sender: FDA-Public Use
  Company Number: FR-AFSSAPS-AVMA20220286

PATIENT
  Age: 21 Year
  Sex: Male
  Weight: 61 kg

DRUGS (1)
  1. TRAMADOL [Suspect]
     Active Substance: TRAMADOL
     Indication: Product used for unknown indication
     Dosage: UNK
     Route: 065

REACTIONS (3)
  - Seizure [Unknown]
  - Drug dependence [Unknown]
  - Memory impairment [Unknown]

NARRATIVE: CASE EVENT DATE: 20200101
